FAERS Safety Report 9207145 (Version 1)
Quarter: 2013Q1

REPORT INFORMATION
  Report Type: Spontaneous
  Country: US (occurrence: None)
  Receive Date: 20120802
  Receipt Date: 20120802
  Transmission Date: 20140127
  Serious: Yes (Life-Threatening)
  Sender: FDA-Public Use
  Company Number: 2012031180

PATIENT
  Age: 26 Year
  Sex: Female

DRUGS (1)
  1. CARIMUNE (IMMUNE GLOBULIN INTRAVENOUS (HUMAN) [Suspect]
     Route: 042
     Dates: start: 200404

REACTIONS (7)
  - Anaphylactic shock [None]
  - Rash erythematous [None]
  - Chest discomfort [None]
  - Throat tightness [None]
  - Hypotension [None]
  - Cyanosis [None]
  - Respiratory failure [None]
